FAERS Safety Report 9461372 (Version 2)
Quarter: 2013Q3

REPORT INFORMATION
  Report Type: Spontaneous
  Country: US (occurrence: US)
  Receive Date: 20130816
  Receipt Date: 20130905
  Transmission Date: 20140515
  Serious: No
  Sender: FDA-Public Use
  Company Number: US-PFIZER INC-2013236567

PATIENT
  Age: 85 Year
  Sex: Male

DRUGS (1)
  1. ADVIL [Suspect]
     Dosage: 2 TABLETS IN THE MORNING AND IN THE AFTERNOON

REACTIONS (1)
  - Hypersomnia [Unknown]
